FAERS Safety Report 4558769-1 (Version None)
Quarter: 2005Q1

REPORT INFORMATION
  Report Type: 
  Country: None (occurrence: None)
  Receive Date: 20050119
  Receipt Date: 20050107
  Transmission Date: 20050727
  Serious: Yes (Hospitalization)
  Sender: FDA-Public Use
  Company Number: 001-0981-997603

PATIENT
  Age: 53 Year
  Sex: Female
  Weight: 106.8221 kg

DRUGS (5)
  1. ATORVASTATIN (ATORVASTATIN) [Suspect]
     Indication: CORONARY ARTERY DISEASE
     Dosage: SEE IMAGE
     Route: 048
     Dates: start: 19990226, end: 19990503
  2. ATORVASTATIN (ATORVASTATIN) [Suspect]
     Indication: CORONARY ARTERY DISEASE
     Dosage: SEE IMAGE
     Route: 048
     Dates: start: 19990504
  3. ATENOLOL [Concomitant]
  4. HYDROCHLOROTHIAZIDE [Concomitant]
  5. ASPIRIN [Concomitant]

REACTIONS (16)
  - ALANINE AMINOTRANSFERASE INCREASED [None]
  - ANOREXIA [None]
  - BLOOD GLUCOSE INCREASED [None]
  - BLOOD KETONE BODY [None]
  - BLOOD POTASSIUM INCREASED [None]
  - BLOOD UREA INCREASED [None]
  - CARDIAC STRESS TEST ABNORMAL [None]
  - CHEST DISCOMFORT [None]
  - CORONARY ANGIOPLASTY [None]
  - DIZZINESS [None]
  - GLYCOSYLATED HAEMOGLOBIN INCREASED [None]
  - LABORATORY TEST INTERFERENCE [None]
  - POLYDIPSIA [None]
  - POLYURIA [None]
  - VISION BLURRED [None]
  - WEIGHT DECREASED [None]
